FAERS Safety Report 7095433-1 (Version None)
Quarter: 2010Q4

REPORT INFORMATION
  Report Type: 
  Country: None (occurrence: None)
  Receive Date: 20101111
  Receipt Date: 20101108
  Transmission Date: 20110411
  Serious: Yes (Death, Other)
  Sender: FDA-Public Use
  Company Number: NL-BRISTOL-MYERS SQUIBB COMPANY-15374333

PATIENT
  Age: 77 Year
  Sex: Female
  Weight: 63 kg

DRUGS (4)
  1. ORENCIA [Suspect]
     Dates: start: 20090729, end: 20100921
  2. PREDNISONE [Concomitant]
  3. DICLOFENAC SODIUM [Concomitant]
  4. OMEPRAZOLE [Concomitant]

REACTIONS (3)
  - ENDOCARDITIS [None]
  - LIMB INJURY [None]
  - OSTEOMYELITIS [None]
